FAERS Safety Report 8585558-3 (Version None)
Quarter: 2012Q3

REPORT INFORMATION
  Report Type: 
  Country: None (occurrence: None)
  Receive Date: 20120810
  Receipt Date: 20120801
  Transmission Date: 20120928
  Serious: Yes (Hospitalization)
  Sender: FDA-Public Use
  Company Number: CA-JNJFOC-20120800723

PATIENT
  Sex: Male
  Weight: 69 kg

DRUGS (10)
  1. REMICADE [Suspect]
     Indication: CROHN'S DISEASE
     Route: 042
     Dates: start: 20120509
  2. OXYCET [Concomitant]
     Route: 065
  3. METHOTREXATE [Concomitant]
     Route: 058
  4. LANTUS [Concomitant]
     Route: 065
  5. ADALAT CC [Concomitant]
     Route: 048
  6. FOLIC ACID [Concomitant]
     Route: 048
  7. PANTOPRAZOLE SODIUM [Concomitant]
     Route: 048
  8. CELEBREX [Concomitant]
     Route: 048
  9. VITAMIN B-12 [Concomitant]
     Route: 065
  10. INSULIN [Concomitant]
     Route: 065

REACTIONS (5)
  - RECTAL HAEMORRHAGE [None]
  - TREMOR [None]
  - INSOMNIA [None]
  - DECREASED APPETITE [None]
  - ASTHENIA [None]
